FAERS Safety Report 8410511-X (Version None)
Quarter: 2012Q2

REPORT INFORMATION
  Report Type: 
  Country: None (occurrence: None)
  Receive Date: 20120529
  Receipt Date: 20030908
  Transmission Date: 20120825
  Serious: Yes (Death)
  Sender: FDA-Public Use
  Company Number: 02100-USA-03-0452

PATIENT
  Age: 72 Year
  Sex: Male
  Weight: 86.4 kg

DRUGS (15)
  1. LASIX [Concomitant]
  2. DIABETA [Concomitant]
  3. LOPID [Concomitant]
  4. FLOMAX [Concomitant]
  5. ZOCOR [Concomitant]
  6. COZAAR [Concomitant]
  7. ALLEGRA [Concomitant]
  8. AMIODARONE HCL [Concomitant]
  9. ALLOPURINOL [Concomitant]
  10. AVANDIA [Concomitant]
  11. TOPROL-XL [Concomitant]
  12. PLETAL [Suspect]
     Dosage: 100 MG, BID, ORAL
     Route: 048
  13. GLUCOPHAGE [Suspect]
  14. PRILOSEC [Concomitant]
  15. ZOCOR [Concomitant]

REACTIONS (5)
  - ANAEMIA [None]
  - PORTOPULMONARY HYPERTENSION [None]
  - HEPATITIS [None]
  - HEPATIC FIBROSIS [None]
  - GASTROINTESTINAL HAEMORRHAGE [None]
